FAERS Safety Report 6356783-7 (Version None)
Quarter: 2009Q3

REPORT INFORMATION
  Report Type: 
  Country: None (occurrence: None)
  Receive Date: 20090915
  Receipt Date: 20090904
  Transmission Date: 20100115
  Serious: Yes (Other)
  Sender: FDA-Public Use
  Company Number: JP-ELI_LILLY_AND_COMPANY-JP200909002443

PATIENT
  Age: 70 Year
  Sex: Male

DRUGS (3)
  1. ALIMTA [Suspect]
     Indication: NON-SMALL CELL LUNG CANCER
     Dosage: 790 MG, OTHER
     Route: 042
     Dates: start: 20090826, end: 20090826
  2. PANVITAN [Concomitant]
     Route: 048
  3. HYDROXOCOBALAMIN ACETATE [Concomitant]
     Route: 030

REACTIONS (2)
  - CEREBRAL INFARCTION [None]
  - PLATELET COUNT DECREASED [None]
